FAERS Safety Report 17535007 (Version 2)
Quarter: 2020Q2

REPORT INFORMATION
  Report Type: Spontaneous
  Country: US (occurrence: US)
  Receive Date: 20200312
  Receipt Date: 20200401
  Transmission Date: 20200713
  Serious: Yes (Hospitalization)
  Sender: FDA-Public Use
  Company Number: US-VIFOR (INTERNATIONAL) INC.-VIT-2020-04380

PATIENT
  Age: 67 Year
  Sex: Female
  Weight: 147.55 kg

DRUGS (15)
  1. GABAPENTIN. [Concomitant]
     Active Substance: GABAPENTIN
  2. LANTUS [Concomitant]
     Active Substance: INSULIN GLARGINE
  3. ASPIRIN. [Concomitant]
     Active Substance: ASPIRIN
  4. VELTASSA [Suspect]
     Active Substance: PATIROMER
     Indication: HYPERKALAEMIA
     Route: 048
     Dates: start: 20170616, end: 202003
  5. LASIX [Concomitant]
     Active Substance: FUROSEMIDE
  6. AMITRIPTYLIN [Concomitant]
     Active Substance: AMITRIPTYLINE
  7. AMLODIPINE [Concomitant]
     Active Substance: AMLODIPINE BESYLATE
  8. NOVOLOG [Concomitant]
     Active Substance: INSULIN ASPART
  9. CALCITRIOL. [Concomitant]
     Active Substance: CALCITRIOL
  10. FERROUS SULF [Concomitant]
     Active Substance: FERROUS SULFATE
  11. CARB/LEVO [Concomitant]
     Active Substance: CARBIDOPA\LEVODOPA
  12. CRESTOR [Concomitant]
     Active Substance: ROSUVASTATIN CALCIUM
  13. HYDRALAZINE [Concomitant]
     Active Substance: HYDRALAZINE HYDROCHLORIDE
  14. LISINOPRIL. [Concomitant]
     Active Substance: LISINOPRIL
  15. VENLAFAXINE [Concomitant]
     Active Substance: VENLAFAXINE HYDROCHLORIDE

REACTIONS (4)
  - Hyperkalaemia [Not Recovered/Not Resolved]
  - Gait disturbance [Unknown]
  - Blood glucose decreased [Unknown]
  - Renal injury [Unknown]

NARRATIVE: CASE EVENT DATE: 20200127
